FAERS Safety Report 9399238 (Version 1)
Quarter: 2013Q3

REPORT INFORMATION
  Report Type: Spontaneous
  Country: JP (occurrence: JP)
  Receive Date: 20130710
  Receipt Date: 20130710
  Transmission Date: 20140515
  Serious: Yes (Other)
  Sender: FDA-Public Use
  Company Number: 2009JP006167

PATIENT
  Age: 40 Year
  Sex: Male

DRUGS (4)
  1. PROGRAF [Suspect]
     Indication: IMMUNOSUPPRESSION
  2. PREDNISOLONE (PREDNISOLONE) [Concomitant]
  3. PEGINTRON (PEGINTERFERON ALFA-2B) INJECTION [Concomitant]
  4. REBETOL (RIBAVIRIN) CAPSULE [Concomitant]

REACTIONS (14)
  - Portal vein thrombosis [None]
  - Hepatic cirrhosis [None]
  - Vascular pseudoaneurysm [None]
  - Medical device complication [None]
  - Hepatitis C [None]
  - Post procedural complication [None]
  - Jaundice cholestatic [None]
  - Weight decreased [None]
  - Biliary tract disorder [None]
  - Hepatic fibrosis [None]
  - Disease recurrence [None]
  - Cholangitis [None]
  - Adhesion [None]
  - Haemoglobin decreased [None]
